FAERS Safety Report 25545874 (Version 1)
Quarter: 2025Q3

REPORT INFORMATION
  Report Type: Other
  Country: EU (occurrence: EU)
  Receive Date: 20250712
  Receipt Date: 20250712
  Transmission Date: 20251020
  Serious: Yes (Other)
  Sender: GLENMARK
  Company Number: None

PATIENT
  Age: 63 Year
  Sex: Male

DRUGS (1)
  1. ABIRATERONE ACETATE [Suspect]
     Active Substance: ABIRATERONE ACETATE
     Indication: Prostate cancer
     Dosage: 1000 MILLIGRAM, QD (2 TABLETTER 1 G?NG DAGLIGEN)
     Route: 065
     Dates: start: 20240801

REACTIONS (1)
  - Polyuria [Unknown]

NARRATIVE: CASE EVENT DATE: 20240801
